FAERS Safety Report 5405598-2 (Version None)
Quarter: 2007Q3

REPORT INFORMATION
  Report Type: 
  Country: None (occurrence: None)
  Receive Date: 20070801
  Receipt Date: 20070723
  Transmission Date: 20080115
  Serious: Yes (Hospitalization, Other)
  Sender: FDA-Public Use
  Company Number: FABR-11984

PATIENT
  Age: 49 Year
  Sex: Male
  Weight: 54.7 kg

DRUGS (16)
  1. FABRAZYME [Suspect]
     Indication: FABRY'S DISEASE
     Dosage: 1 MG/KG, Q2WKS; IV
     Route: 042
     Dates: start: 20030924
  2. ASPIRIN [Concomitant]
  3. LASIX. MFR: HOECHST PHARMACEUTICALS, INCORPORATED [Concomitant]
  4. TOPROL XL. MFR: ASTRA PHARMACEUTICAL PRODUCTS, INC. [Concomitant]
  5. VERAPAMIL EXTENDED-RELEASE [Concomitant]
  6. AMIODARONE HCL [Concomitant]
  7. COZAAR. MFR: MERCK SHARP + DOME [Concomitant]
  8. PRAVACHOL. MFR: BRISTOL-MYERS SQUIBB [Concomitant]
  9. MEDROL. MFR: UPJOHN COMPANY [Concomitant]
  10. RENAL CAPS [Concomitant]
  11. COMBIVENT [Concomitant]
  12. ADVAIR DISKUS 100/50 [Concomitant]
  13. COUMADIN [Concomitant]
  14. IMURAN. MFR: BURROUGHS WELLCOME + COMPANY [Concomitant]
  15. CYCLOSPORINE [Concomitant]
  16. TEGRETOL. MFR: CIBA-GEIGY [Concomitant]

REACTIONS (7)
  - FINGER AMPUTATION [None]
  - GANGRENE [None]
  - IMPAIRED HEALING [None]
  - LOCALISED INFECTION [None]
  - OSTEOMYELITIS [None]
  - SKIN LACERATION [None]
  - TOE AMPUTATION [None]
